FAERS Safety Report 16309427 (Version 2)
Quarter: 2019Q3

REPORT INFORMATION
  Report Type: Spontaneous
  Country: FR (occurrence: FR)
  Receive Date: 20190514
  Receipt Date: 20190822
  Transmission Date: 20191004
  Serious: Yes (Death)
  Sender: FDA-Public Use
  Company Number: FR-PFIZER INC-2019199519

PATIENT
  Age: 57 Year
  Sex: Female
  Weight: 60 kg

DRUGS (7)
  1. DECONTRACTYL [MEPHENESIN;METHYL NICOTINATE] [Suspect]
     Active Substance: MEPHENESIN\METHYL NICOTINATE
     Indication: NECK PAIN
     Dosage: UNK (1 TO 2 BOXES UP TO 5 ACCORDING TO THE ENTOURAGE)
     Route: 048
     Dates: start: 2012
  2. VENLAFAXINE HCL [Suspect]
     Active Substance: VENLAFAXINE HYDROCHLORIDE
     Indication: BURNOUT SYNDROME
     Dosage: 3 DF, 1X/DAY
     Route: 048
     Dates: start: 201812
  3. TERCIAN [CYAMEMAZINE TARTRATE] [Concomitant]
     Active Substance: CYAMEMAZINE
     Indication: BURNOUT SYNDROME
     Dosage: 2 DF, 1X/DAY
     Route: 048
     Dates: start: 201812
  4. LORMETAZEPAM [Concomitant]
     Active Substance: LORMETAZEPAM
     Indication: BURNOUT SYNDROME
     Dosage: 1 DF, 1X/DAY
     Route: 048
     Dates: start: 201812
  5. TIAPRIDE [Suspect]
     Active Substance: TIAPRIDE
     Dosage: UNK
     Route: 048
  6. THERALENE [Suspect]
     Active Substance: TRIMEPRAZINE
     Indication: BURNOUT SYNDROME
     Dosage: 30 GTT, 1X/DAY
     Route: 048
     Dates: start: 201812
  7. PRAZEPAM [Suspect]
     Active Substance: PRAZEPAM
     Indication: BURNOUT SYNDROME
     Dosage: 3 DF, 1X/DAY
     Route: 048
     Dates: start: 201812

REACTIONS (6)
  - Respiratory depression [Fatal]
  - Poisoning deliberate [Fatal]
  - Off label use [Unknown]
  - Aspiration [Fatal]
  - Depressed level of consciousness [Fatal]
  - Product use in unapproved indication [Unknown]
